FAERS Safety Report 9224894 (Version 1)
Quarter: 2013Q2

REPORT INFORMATION
  Report Type: Spontaneous
  Country: IT (occurrence: IT)
  Receive Date: 20130411
  Receipt Date: 20130411
  Transmission Date: 20140414
  Serious: Yes (Hospitalization)
  Sender: FDA-Public Use
  Company Number: IT-PFIZER INC-2013110831

PATIENT
  Sex: Female

DRUGS (2)
  1. CARBOPLATIN [Suspect]
     Dosage: UNK
  2. ETOPOSIDE [Suspect]
     Dosage: UNK

REACTIONS (4)
  - Anaemia [Unknown]
  - Leukopenia [Unknown]
  - Respiratory failure [Unknown]
  - Thrombocytopenia [Unknown]
